FAERS Safety Report 7968188-3 (Version None)
Quarter: 2011Q4

REPORT INFORMATION
  Report Type: 
  Country: None (occurrence: None)
  Receive Date: 20111209
  Receipt Date: 20111205
  Transmission Date: 20120403
  Serious: Yes (Death, Hospitalization, Other)
  Sender: FDA-Public Use
  Company Number: PHHY2010AU092682

PATIENT
  Sex: Female

DRUGS (5)
  1. OXYCODONE HCL [Concomitant]
     Indication: PAIN
     Dosage: ONE EVERY SIX HOURS WHEN REQUIRED
  2. PANAMAX [Concomitant]
     Indication: PAIN
     Dosage: 500 MG, TWO TABLETS THREE TIMES DAILY
  3. NARDIL [Concomitant]
     Indication: DEPRESSION
     Dosage: 15 MG, UNK
  4. ZOLEDRONOC ACID [Suspect]
     Dosage: 5 MG
     Route: 042
     Dates: start: 20091204
  5. RISPERDAL [Concomitant]
     Indication: DEMENTIA
     Dosage: 2 MG, AT NIGHT

REACTIONS (3)
  - CEREBROVASCULAR ACCIDENT [None]
  - CIRCULATORY COLLAPSE [None]
  - LOSS OF CONSCIOUSNESS [None]
